FAERS Safety Report 9574659 (Version 2)
Quarter: 2013Q4

REPORT INFORMATION
  Report Type: Spontaneous
  Country: US (occurrence: US)
  Receive Date: 20131001
  Receipt Date: 20131001
  Transmission Date: 20140711
  Serious: Yes (Other)
  Sender: FDA-Public Use
  Company Number: US-NAPPMUNDI-USA-2012-0084624

PATIENT
  Age: 64 Year
  Sex: Male

DRUGS (7)
  1. BUTRANS [Suspect]
     Indication: ARTHRALGIA
     Dosage: 20 MCG/HR, UNK
     Dates: start: 201107
  2. PERCOCET /00867901/ [Suspect]
     Indication: PRODUCT USED FOR UNKNOWN INDICATION
     Dosage: UNK, PRN
  3. AMBIEN [Suspect]
     Indication: INSOMNIA
  4. ANTIDEPRESSANTS [Suspect]
     Indication: PRODUCT USED FOR UNKNOWN INDICATION
  5. MARIJUANA [Suspect]
     Indication: DRUG ABUSE
  6. ALCOHOL [Suspect]
     Indication: DRUG ABUSE
  7. OXYCODONE / ACETAMINOPHEN [Concomitant]
     Indication: ARTHRALGIA
     Dosage: UNK, SEE TEXT

REACTIONS (2)
  - Substance abuse [Unknown]
  - Drug effect decreased [Unknown]
